FAERS Safety Report 11985658 (Version 1)
Quarter: 2016Q1

REPORT INFORMATION
  Report Type: Spontaneous
  Country: US (occurrence: US)
  Receive Date: 20160201
  Receipt Date: 20160201
  Transmission Date: 20160526
  Serious: Yes (Hospitalization, Other)
  Sender: FDA-Public Use
  Company Number: US-DSJP-DSU-2015-134298

PATIENT

DRUGS (4)
  1. NORVASC [Concomitant]
     Active Substance: AMLODIPINE BESYLATE
     Indication: PRODUCT USED FOR UNKNOWN INDICATION
     Dosage: 10 MG, QD
  2. BENICAR [Suspect]
     Active Substance: OLMESARTAN MEDOXOMIL
     Indication: HYPERTENSION
     Dosage: 40 MG, QD
     Dates: start: 20090924, end: 20131101
  3. ATENOLOL. [Concomitant]
     Active Substance: ATENOLOL
     Indication: PRODUCT USED FOR UNKNOWN INDICATION
     Dosage: 50MG/100MG, UNK
     Dates: start: 200403, end: 201506
  4. PREDNISONE. [Concomitant]
     Active Substance: PREDNISONE
     Indication: PRODUCT USED FOR UNKNOWN INDICATION
     Dosage: 5 MG, UNK

REACTIONS (14)
  - Hepatic cyst [Unknown]
  - Diverticulum [Unknown]
  - Malabsorption [Recovered/Resolved]
  - Hepatosplenomegaly [Unknown]
  - Diverticulitis [Recovered/Resolved]
  - Renal cyst [Unknown]
  - Gastric polyps [Unknown]
  - Depression [Unknown]
  - Large intestine polyp [Recovered/Resolved]
  - Umbilical hernia [Unknown]
  - Hiatus hernia [Recovered/Resolved]
  - Hepatic steatosis [Unknown]
  - Constipation [Recovered/Resolved]
  - Dizziness [Recovered/Resolved]

NARRATIVE: CASE EVENT DATE: 20100310
